FAERS Safety Report 19762418 (Version 1)
Quarter: 2021Q3

REPORT INFORMATION
  Report Type: Spontaneous
  Country: US (occurrence: US)
  Receive Date: 20210826
  Receipt Date: 20210826
  Transmission Date: 20211014
  Serious: No
  Sender: FDA-Public Use
  Company Number: None

PATIENT
  Sex: Female

DRUGS (1)
  1. CAPECITABINE 500MG NOVADOZ PHARMACEUTICALS [Suspect]
     Active Substance: CAPECITABINE
     Indication: BREAST CANCER
     Route: 048
     Dates: start: 20210602, end: 202106

REACTIONS (6)
  - Nausea [None]
  - Abdominal pain upper [None]
  - Diarrhoea [None]
  - Asthenia [None]
  - Cardiac disorder [None]
  - Therapy cessation [None]
